FAERS Safety Report 6471781-0 (Version None)
Quarter: 2009Q4

REPORT INFORMATION
  Report Type: 
  Country: None (occurrence: None)
  Receive Date: 20091203
  Receipt Date: 20080418
  Transmission Date: 20100525
  Serious: Yes (Other)
  Sender: FDA-Public Use
  Company Number: US-ELI_LILLY_AND_COMPANY-US200804000188

PATIENT
  Sex: Female

DRUGS (2)
  1. FORTEO [Suspect]
     Dosage: UNK, UNK
     Dates: start: 20060901
  2. FORTEO [Suspect]

REACTIONS (9)
  - ANKLE FRACTURE [None]
  - FALL [None]
  - GAIT DISTURBANCE [None]
  - HYPOACUSIS [None]
  - INJECTION SITE HAEMATOMA [None]
  - INJECTION SITE HAEMORRHAGE [None]
  - ROAD TRAFFIC ACCIDENT [None]
  - SPINAL COLUMN STENOSIS [None]
  - SPINAL FRACTURE [None]
